FAERS Safety Report 12081904 (Version 2)
Quarter: 2016Q1

REPORT INFORMATION
  Report Type: Report from Study
  Country: FR (occurrence: FR)
  Receive Date: 20160216
  Receipt Date: 20160320
  Transmission Date: 20160526
  Serious: Yes (Other)
  Sender: FDA-Public Use
  Company Number: FR-AMGEN-FRANI2016016722

PATIENT
  Age: 24 Year
  Sex: Male

DRUGS (1)
  1. BLINATUMOMAB [Suspect]
     Active Substance: BLINATUMOMAB
     Indication: PRODUCT USED FOR UNKNOWN INDICATION
     Dosage: 28 MUG, QD
     Route: 065
     Dates: start: 20151206, end: 20151213

REACTIONS (5)
  - Platelet count abnormal [Unknown]
  - Blast cell count increased [Not Recovered/Not Resolved]
  - Haemoglobin abnormal [Unknown]
  - Pyrexia [Unknown]
  - Asthenia [Unknown]

NARRATIVE: CASE EVENT DATE: 20151213
